FAERS Safety Report 5568116-4 (Version None)
Quarter: 2007Q4

REPORT INFORMATION
  Report Type: 
  Country: None (occurrence: None)
  Receive Date: 20071220
  Receipt Date: 20071210
  Transmission Date: 20080405
  Serious: Yes (Other)
  Sender: FDA-Public Use
  Company Number: GB-JNJFOC-20071204149

PATIENT
  Age: 69 Year
  Sex: Male
  Weight: 107 kg

DRUGS (4)
  1. ZAMADOL [Suspect]
     Indication: BACK PAIN
     Route: 048
  2. BECLOMETHASONE DIPROPIONATE [Concomitant]
     Route: 065
  3. CETIRIZINE HCL [Concomitant]
     Route: 065
  4. ACETAMINOPHEN [Concomitant]
     Route: 065

REACTIONS (1)
  - JAUNDICE [None]
